FAERS Safety Report 9321887 (Version 1)
Quarter: 2013Q2

REPORT INFORMATION
  Report Type: Spontaneous
  Country: US (occurrence: None)
  Receive Date: 20130528
  Receipt Date: 20130528
  Transmission Date: 20140414
  Serious: Yes (Hospitalization, Other)
  Sender: FDA-Public Use
  Company Number: 1305-671

PATIENT
  Age: 72 Year
  Sex: Male
  Weight: 82.1 kg

DRUGS (6)
  1. EYLEA [Suspect]
     Indication: AGE-RELATED MACULAR DEGENERATION
     Dosage: INTRAVITREAL
     Dates: start: 201208, end: 201211
  2. TAMSULOSIN (TAMSULOSIN) [Concomitant]
  3. PROSCAR [Concomitant]
  4. ALPRAZOLAM (ALPRAZOLAM) [Concomitant]
  5. TEMAZEPAM (TEMAZEPAM) [Concomitant]
  6. ASPIRIN (ACETYLSALICYLIC ACID) [Concomitant]

REACTIONS (5)
  - Chest pain [None]
  - Headache [None]
  - Eye discharge [None]
  - Rhinorrhoea [None]
  - Coronary artery thrombosis [None]
